FAERS Safety Report 7332883-X (Version None)
Quarter: 2011Q1

REPORT INFORMATION
  Report Type: 
  Country: None (occurrence: None)
  Receive Date: 20110304
  Receipt Date: 20110222
  Transmission Date: 20110831
  Serious: Yes (Other)
  Sender: FDA-Public Use
  Company Number: PHHY2011US09015

PATIENT

DRUGS (1)
  1. PARLODEL [Suspect]
     Dosage: UNK
     Route: 064

REACTIONS (3)
  - DRUG EXPOSURE DURING PREGNANCY [None]
  - OBSESSIVE-COMPULSIVE DISORDER [None]
  - NERVOUS SYSTEM DISORDER [None]
